FAERS Safety Report 5803878-X (Version None)
Quarter: 2008Q3

REPORT INFORMATION
  Report Type: 
  Country: None (occurrence: None)
  Receive Date: 20080707
  Receipt Date: 20080618
  Transmission Date: 20090109
  Serious: Yes (Death)
  Sender: FDA-Public Use
  Company Number: S08-FRA-02213-01

PATIENT
  Age: 43 Year
  Sex: Male

DRUGS (5)
  1. SEROPLEX (ESCITALOPRAM) [Suspect]
     Indication: DEPRESSION
     Dosage: 10 MG QD PO
     Route: 048
     Dates: start: 20080318, end: 20080101
  2. SEROPLEX (ESCITALORPAM) [Suspect]
     Indication: DEPRESSION
     Dosage: 15 MG QD PO
     Route: 048
     Dates: start: 20080101, end: 20080430
  3. AOTAL (ACAMPROSATE) [Concomitant]
  4. STRESAM (ETIFOXINE) [Concomitant]
  5. ZOLPIDEM TARTRATE [Concomitant]

REACTIONS (3)
  - HAEMATOMA [None]
  - HEAD INJURY [None]
  - MENINGORRHAGIA [None]
